FAERS Safety Report 11720181 (Version 1)
Quarter: 2015Q4

REPORT INFORMATION
  Report Type: Spontaneous
  Country: US (occurrence: US)
  Receive Date: 20151110
  Receipt Date: 20151110
  Transmission Date: 20160304
  Serious: No
  Sender: FDA-Public Use
  Company Number: US-PERRIGO-14US005217

PATIENT
  Age: 62 Year
  Sex: Female
  Weight: 59.86 kg

DRUGS (2)
  1. CICLOPIROX RX 8% 3C0 [Suspect]
     Active Substance: CICLOPIROX
     Indication: ONYCHOMYCOSIS
     Dosage: ONE APPLICATION, QD
     Route: 061
     Dates: start: 201406
  2. CICLOPIROX RX 8% 3C0 [Suspect]
     Active Substance: CICLOPIROX
     Dosage: ONE APPLICATION, QD
     Route: 061
     Dates: start: 20140102, end: 201405

REACTIONS (4)
  - Nail disorder [None]
  - Drug ineffective [Unknown]
  - Pseudomonas infection [None]
  - Condition aggravated [Unknown]

NARRATIVE: CASE EVENT DATE: 20140102
